FAERS Safety Report 9825429 (Version 1)
Quarter: 2014Q1

REPORT INFORMATION
  Report Type: Spontaneous
  Country: US (occurrence: US)
  Receive Date: 20140117
  Receipt Date: 20140117
  Transmission Date: 20141002
  Serious: No
  Sender: FDA-Public Use
  Company Number: US-PFIZER INC-2014014984

PATIENT
  Age: 51 Year
  Sex: Female
  Weight: 54.42 kg

DRUGS (4)
  1. EFFEXOR XR [Suspect]
     Indication: ANXIETY
     Dosage: 150 MG, 2X/DAY
  2. EFFEXOR XR [Suspect]
     Indication: DEPRESSION
  3. TOPAMAX [Concomitant]
     Indication: HEADACHE
     Dosage: 50 MG, 2X/DAY
  4. KLONOPIN [Concomitant]
     Indication: ANXIETY
     Dosage: 2 MG, 2X/DAY

REACTIONS (1)
  - Alopecia [Recovering/Resolving]
